FAERS Safety Report 15555493 (Version 1)
Quarter: 2018Q4

REPORT INFORMATION
  Report Type: Spontaneous
  Country: JP (occurrence: JP)
  Receive Date: 20181026
  Receipt Date: 20181026
  Transmission Date: 20190205
  Serious: Yes (Other)
  Sender: FDA-Public Use
  Company Number: JP-MYLANLABS-2018M1077397

PATIENT
  Age: 81 Year
  Sex: Male
  Weight: 51 kg

DRUGS (6)
  1. CARBOPLATIN INJ. 50MG ^NK^ [Suspect]
     Active Substance: CARBOPLATIN
     Dosage: 400 MG, CYCLE
     Route: 041
     Dates: start: 20180711, end: 20180711
  2. CARBOPLATIN INJ. 50MG ^NK^ [Suspect]
     Active Substance: CARBOPLATIN
     Dosage: 400 MG, CYCLE
     Route: 041
     Dates: start: 20180620, end: 20180620
  3. IFOMIDE [Concomitant]
     Active Substance: IFOSFAMIDE
     Indication: LYMPHOMA
     Route: 065
  4. CARBOPLATIN INJ. 50MG ^NK^ [Suspect]
     Active Substance: CARBOPLATIN
     Indication: LYMPHOMA
     Dosage: 400 MG, CYCLE
     Route: 041
     Dates: start: 20180528, end: 20180528
  5. ETOPOSIDE. [Concomitant]
     Active Substance: ETOPOSIDE
     Indication: LYMPHOMA
     Route: 065
  6. RITUXIMAB. [Concomitant]
     Active Substance: RITUXIMAB
     Indication: LYMPHOMA
     Route: 065

REACTIONS (3)
  - Auditory disorder [Unknown]
  - Hiccups [Recovering/Resolving]
  - Dysphonia [Unknown]

NARRATIVE: CASE EVENT DATE: 20180530
